FAERS Safety Report 7832619-X (Version None)
Quarter: 2011Q4

REPORT INFORMATION
  Report Type: 
  Country: None (occurrence: None)
  Receive Date: 20111024
  Receipt Date: 20111014
  Transmission Date: 20120403
  Serious: No
  Sender: FDA-Public Use
  Company Number: US-BIOGENIDEC-2011BI016016

PATIENT
  Sex: Female

DRUGS (2)
  1. TYSABRI [Suspect]
     Indication: MULTIPLE SCLEROSIS
     Route: 042
     Dates: start: 20110117
  2. MEDICATION (NOS) [Concomitant]
     Indication: PREMEDICATION

REACTIONS (3)
  - MULTIPLE SCLEROSIS RELAPSE [None]
  - URTICARIA [None]
  - DRUG INEFFECTIVE [None]
